FAERS Safety Report 18410736 (Version 1)
Quarter: 2020Q4

REPORT INFORMATION
  Report Type: Spontaneous
  Country: GB (occurrence: GB)
  Receive Date: 20201021
  Receipt Date: 20201021
  Transmission Date: 20210114
  Serious: Yes (Life-Threatening, Hospitalization, Other)
  Sender: FDA-Public Use
  Company Number: GB-GRANULES-GB-2020GRALIT00016

PATIENT
  Sex: Male

DRUGS (13)
  1. VITAMIN K [MENADIONE] [Interacting]
     Active Substance: MENADIONE
     Indication: COAGULOPATHY
     Route: 065
  2. N-ACETYLCYSTEINE [Interacting]
     Active Substance: ACETYLCYSTEINE
     Indication: COAGULOPATHY
     Route: 065
  3. AMLODIPINE [Concomitant]
     Active Substance: AMLODIPINE BESYLATE
     Indication: PRODUCT USED FOR UNKNOWN INDICATION
     Route: 065
  4. VITAMIN K [MENADIONE] [Interacting]
     Active Substance: MENADIONE
     Indication: MULTIPLE ORGAN DYSFUNCTION SYNDROME
  5. N-ACETYLCYSTEINE [Interacting]
     Active Substance: ACETYLCYSTEINE
     Indication: HEPATIC FUNCTION ABNORMAL
  6. LEVOTHYROXINE. [Suspect]
     Active Substance: LEVOTHYROXINE
     Indication: PRODUCT USED FOR UNKNOWN INDICATION
     Route: 048
  7. METFORMIN HCL [Suspect]
     Active Substance: METFORMIN HYDROCHLORIDE
     Indication: PRODUCT USED FOR UNKNOWN INDICATION
     Dosage: 50-60 G
     Route: 048
  8. N-ACETYLCYSTEINE [Interacting]
     Active Substance: ACETYLCYSTEINE
     Indication: MULTIPLE ORGAN DYSFUNCTION SYNDROME
  9. TELMISARTAN. [Concomitant]
     Active Substance: TELMISARTAN
     Indication: PRODUCT USED FOR UNKNOWN INDICATION
     Route: 065
  10. BICARBONATE [Interacting]
     Active Substance: SODIUM BICARBONATE
     Indication: PRODUCT USED FOR UNKNOWN INDICATION
     Route: 042
  11. HYDROCHLOROTHIAZIDE. [Concomitant]
     Active Substance: HYDROCHLOROTHIAZIDE
     Indication: PRODUCT USED FOR UNKNOWN INDICATION
     Route: 065
  12. NOREPINEPHRINE. [Interacting]
     Active Substance: NOREPINEPHRINE
     Indication: BLOOD PRESSURE MEASUREMENT
     Dosage: 0.1 MCG/KG/MIN
     Route: 065
  13. VITAMIN K [MENADIONE] [Interacting]
     Active Substance: MENADIONE
     Indication: HEPATIC FUNCTION ABNORMAL

REACTIONS (15)
  - Renal impairment [Recovered/Resolved]
  - Abdominal pain [Recovered/Resolved]
  - Overdose [Recovered/Resolved]
  - Coagulopathy [Recovered/Resolved]
  - Multiple organ dysfunction syndrome [Recovered/Resolved]
  - Pneumonia [Recovered/Resolved]
  - Hyperlactacidaemia [Recovered/Resolved]
  - Agitation [Recovered/Resolved]
  - Metabolic acidosis [Recovered/Resolved]
  - Lactic acidosis [Recovered/Resolved]
  - Vomiting [Recovered/Resolved]
  - Confusional state [Recovered/Resolved]
  - Acute kidney injury [Recovered/Resolved]
  - Hepatic function abnormal [Recovered/Resolved]
  - Acidosis [Recovered/Resolved]
